FAERS Safety Report 8179774-2 (Version None)
Quarter: 2012Q1

REPORT INFORMATION
  Report Type: 
  Country: None (occurrence: None)
  Receive Date: 20120302
  Receipt Date: 20120227
  Transmission Date: 20120608
  Serious: Yes (Death, Hospitalization)
  Sender: FDA-Public Use
  Company Number: ES-CELGENEUS-144-50794-12012977

PATIENT
  Sex: Male
  Weight: 56 kg

DRUGS (8)
  1. VORICONAZOLE [Concomitant]
     Indication: PROPHYLAXIS
     Dosage: 400 MILLIGRAM
     Route: 065
  2. VIDAZA [Suspect]
     Route: 065
     Dates: start: 20100322, end: 20100326
  3. ATROVENT [Concomitant]
     Dosage: 6 DOSAGE FORMS
     Route: 055
  4. CIPROFLOXACIN HCL [Concomitant]
     Indication: INFECTION PROPHYLAXIS
     Dosage: 1000 MILLIGRAM
     Route: 065
  5. VIDAZA [Suspect]
     Indication: ACUTE MYELOID LEUKAEMIA
     Dosage: 118.5 MILLIGRAM
     Route: 065
     Dates: start: 20100208, end: 20100212
  6. VENTOLIN [Concomitant]
     Dosage: 6 DOSAGE FORMS
     Route: 055
  7. AVIDART [Concomitant]
     Dosage: 1 TABLET
     Route: 048
  8. OMEPRAZOLE [Concomitant]
     Indication: PROPHYLAXIS
     Dosage: 20 MILLIGRAM
     Route: 065

REACTIONS (4)
  - INJECTION SITE CELLULITIS [None]
  - PNEUMONIA [None]
  - BRONCHOPULMONARY ASPERGILLOSIS [None]
  - ACUTE MYELOID LEUKAEMIA [None]
